FAERS Safety Report 13635778 (Version 1)
Quarter: 2017Q2

REPORT INFORMATION
  Report Type: Spontaneous
  Country: US (occurrence: US)
  Receive Date: 20170531
  Receipt Date: 20170531
  Transmission Date: 20170830
  Serious: No
  Sender: FDA-Public Use
  Company Number: US-ASTELLAS-1746934

PATIENT
  Sex: Female

DRUGS (1)
  1. TARCEVA [Suspect]
     Active Substance: ERLOTINIB HYDROCHLORIDE
     Indication: NON-SMALL CELL LUNG CANCER
     Route: 048
     Dates: start: 20140818

REACTIONS (4)
  - Oral pain [Recovered/Resolved]
  - Dysuria [Recovered/Resolved]
  - Oesophageal pain [Recovered/Resolved]
  - Lip pain [Recovered/Resolved]
